FAERS Safety Report 11819641 (Version 3)
Quarter: 2018Q1

REPORT INFORMATION
  Report Type: Spontaneous
  Country: US (occurrence: US)
  Receive Date: 20151210
  Receipt Date: 20180222
  Transmission Date: 20180508
  Serious: No
  Sender: FDA-Public Use
  Company Number: US-JNJFOC-20151112862

PATIENT
  Sex: Female

DRUGS (1)
  1. TOPAMAX [Suspect]
     Active Substance: TOPIRAMATE
     Indication: PRODUCT USED FOR UNKNOWN INDICATION
     Dosage: IN COMBINATION OF 100 MG AND 50 MG TABLETS
     Route: 048

REACTIONS (3)
  - Product size issue [Unknown]
  - Foreign body in respiratory tract [Unknown]
  - Adverse event [Unknown]
